FAERS Safety Report 8896249 (Version 1)
Quarter: 2012Q4

REPORT INFORMATION
  Report Type: Spontaneous
  Country: US (occurrence: None)
  Receive Date: 20121106
  Receipt Date: 20121106
  Transmission Date: 20130627
  Serious: Yes (Hospitalization, Other)
  Sender: FDA-Public Use
  Company Number: None

PATIENT
  Age: 25 Year
  Sex: Female
  Weight: 72.58 kg

DRUGS (1)
  1. MIRENA  IUD [Suspect]

REACTIONS (7)
  - Pain [None]
  - Vaginal haemorrhage [None]
  - Vulvovaginal dryness [None]
  - Dyspareunia [None]
  - Muscle spasms [None]
  - Impaired work ability [None]
  - Device dislocation [None]
